FAERS Safety Report 10063026 (Version 1)
Quarter: 2014Q2

REPORT INFORMATION
  Report Type: Spontaneous
  Country: DE (occurrence: DE)
  Receive Date: 20140407
  Receipt Date: 20140407
  Transmission Date: 20141212
  Serious: Yes (Death, Life-Threatening, Hospitalization)
  Sender: FDA-Public Use
  Company Number: DE-TEVA-472501GER

PATIENT
  Age: 74 Year
  Sex: Female
  Weight: 86 kg

DRUGS (15)
  1. CLOPIDOGREL [Suspect]
     Indication: CORONARY ARTERIAL STENT INSERTION
     Dosage: 75 MILLIGRAM DAILY;
     Route: 048
     Dates: start: 20130912, end: 20131105
  2. PRAVASTATIN [Suspect]
     Indication: HYPERLIPIDAEMIA
     Dosage: 40 MILLIGRAM DAILY;
     Route: 048
     Dates: start: 200901, end: 20131105
  3. AMITRIPTYLIN [Suspect]
     Dosage: 50 MILLIGRAM DAILY;
     Route: 048
     Dates: start: 201309
  4. ACETYLSALICYLIC ACID [Concomitant]
     Indication: ARTERIAL OCCLUSIVE DISEASE
     Dosage: 100 MILLIGRAM DAILY;
     Route: 048
     Dates: start: 20090108, end: 20140103
  5. PANTOPRAZOL [Concomitant]
     Indication: GASTRITIS PROPHYLAXIS
     Dosage: 20 MILLIGRAM DAILY;
     Route: 048
     Dates: start: 200901
  6. TORASEMID [Concomitant]
     Indication: HYPERTENSION
     Dosage: 25 MILLIGRAM DAILY;
     Route: 048
     Dates: start: 200901
  7. BISOPROLOL [Concomitant]
     Indication: HYPERTENSION
     Dosage: 10 MILLIGRAM DAILY;
     Route: 048
     Dates: start: 200901
  8. RAMIPRIL [Concomitant]
     Indication: HYPERTENSION
     Dosage: 20 MILLIGRAM DAILY;
     Route: 048
     Dates: start: 200901
  9. ALLOPURINOL [Concomitant]
     Indication: HYPERURICAEMIA
     Route: 048
     Dates: start: 200901
  10. LERCANIDIPIN [Concomitant]
     Indication: HYPERTENSION
     Dosage: 20 MILLIGRAM DAILY;
     Route: 048
     Dates: start: 200901
  11. COLECALCIFEROL [Concomitant]
     Dosage: 20000 IU (INTERNATIONAL UNIT) DAILY;
  12. METAMIZOL [Concomitant]
     Dosage: 1-0-0
  13. PREGABALIN [Concomitant]
     Dosage: 50 MILLIGRAM DAILY;
     Dates: start: 20130923
  14. MOXONIDIN [Concomitant]
     Dosage: .8 MILLIGRAM DAILY;
     Dates: start: 20130923
  15. MOVICOL [Concomitant]
     Dosage: 2X1
     Dates: start: 20130923

REACTIONS (8)
  - Acute hepatic failure [Fatal]
  - Jaundice [Fatal]
  - Blood bilirubin increased [Fatal]
  - Transaminases increased [Fatal]
  - Blood alkaline phosphatase increased [Fatal]
  - Chromaturia [Fatal]
  - Faeces discoloured [Fatal]
  - Pruritus [Fatal]
